FAERS Safety Report 9031111 (Version 4)
Quarter: 2015Q2

REPORT INFORMATION
  Report Type: Spontaneous
  Country: US (occurrence: US)
  Receive Date: 20130123
  Receipt Date: 20150513
  Transmission Date: 20150821
  Serious: Yes (Life-Threatening, Hospitalization)
  Sender: FDA-Public Use
  Company Number: US-BAYER-2013-008888

PATIENT
  Age: 40 Year
  Sex: Female
  Weight: 92.52 kg

DRUGS (5)
  1. ALBUTEROL. [Concomitant]
     Active Substance: ALBUTEROL
  2. PREDNISONE. [Concomitant]
     Active Substance: PREDNISONE
     Dosage: 20 MG, UNK
  3. AZITHROMYCIN [Concomitant]
     Active Substance: AZITHROMYCIN ANHYDROUS
     Indication: BRONCHITIS
     Dosage: 250 MG, UNK
  4. YASMIN [Suspect]
     Active Substance: DROSPIRENONE\ETHINYL ESTRADIOL
     Indication: CONTRACEPTION
     Dosage: UNK
     Dates: start: 20030410, end: 20040607
  5. YASMIN [Suspect]
     Active Substance: DROSPIRENONE\ETHINYL ESTRADIOL
     Indication: MENSTRUAL CYCLE MANAGEMENT
     Dosage: UNK
     Dates: start: 20050425, end: 20051211

REACTIONS (7)
  - Vertebral artery dissection [None]
  - Cerebrovascular accident [Recovered/Resolved]
  - Ischaemic stroke [None]
  - Pain [None]
  - Injury [None]
  - Cerebral infarction [None]
  - Cerebellar infarction [None]

NARRATIVE: CASE EVENT DATE: 20051211
